FAERS Safety Report 6855112-X (Version None)
Quarter: 2010Q3

REPORT INFORMATION
  Report Type: 
  Country: None (occurrence: None)
  Receive Date: 20100717
  Receipt Date: 20081125
  Transmission Date: 20110219
  Serious: Yes (Other)
  Sender: FDA-Public Use
  Company Number: US-PFIZER INC-2008000122

PATIENT
  Age: 60 Year
  Sex: Male
  Weight: 82 kg

DRUGS (12)
  1. CHANTIX [Suspect]
     Indication: SMOKING CESSATION THERAPY
     Dosage: UNK
     Dates: start: 20061012, end: 20061114
  2. MOXIFLOXACIN [Suspect]
     Indication: BRONCHITIS
     Dosage: 400 MG, 1X/DAY
     Route: 048
     Dates: start: 20061012, end: 20061109
  3. ALBUTEROL [Concomitant]
     Dosage: 5MG/ML SOLUTION FOR INHALATION
     Route: 055
  4. DIGOXIN [Concomitant]
     Dosage: 0.25 MG, 1X/DAY
  5. EPIPEN [Concomitant]
     Dosage: 0.3MG.0.3ML INJECT 0.3MG
  6. IPRATROPIUM BROMIDE [Concomitant]
     Dosage: 0.02 %, INHALE 1 EVERY 6 HOURS FOR LUNGS
     Route: 055
  7. LEVOSALBUTAMOL [Concomitant]
     Dosage: 59MCG 200D ORAL INHALE 2 PUFFS EVERY 6 HOURS
  8. LORATADINE [Concomitant]
     Dosage: 10 MG, AS NEEDED
  9. NITROGLYCERIN [Concomitant]
     Dosage: 0.4 MG, AS NEEDED
  10. POTASSIUM CHLORIDE [Concomitant]
     Dosage: 10 MEQ, ALTERNATE DAY
  11. RANITIDINE HYDROCHLORIDE [Concomitant]
     Dosage: 180 MG, 2X/DAY
  12. SIMVASTATIN [Concomitant]
     Dosage: 80 MG, 1/2 ORALLY AT HS
     Route: 048

REACTIONS (2)
  - DRUG ERUPTION [None]
  - URTICARIA [None]
